FAERS Safety Report 15344811 (Version 3)
Quarter: 2018Q4

REPORT INFORMATION
  Report Type: Spontaneous
  Country: IT (occurrence: IT)
  Receive Date: 20180903
  Receipt Date: 20181004
  Transmission Date: 20190204
  Serious: Yes (Hospitalization)
  Sender: FDA-Public Use
  Company Number: PHHY2018IT088132

PATIENT
  Age: 32 Year
  Sex: Female

DRUGS (3)
  1. PEGVISOMANT [Concomitant]
     Active Substance: PEGVISOMANT
     Indication: PRODUCT USED FOR UNKNOWN INDICATION
     Dosage: 30 MG, QD
     Route: 065
     Dates: start: 20160601
  2. ALPRAZOLAM. [Concomitant]
     Active Substance: ALPRAZOLAM
     Indication: PRODUCT USED FOR UNKNOWN INDICATION
     Dosage: 5 GTT, QD
     Route: 065
  3. SIGNIFOR LAR [Suspect]
     Active Substance: PASIREOTIDE
     Indication: ACROMEGALY
     Dosage: 40 MG, UNK
     Route: 065

REACTIONS (7)
  - Fatigue [Unknown]
  - Hyperglycaemia [Unknown]
  - Diabetic ketoacidosis [Recovering/Resolving]
  - Vision blurred [Unknown]
  - Polyuria [Unknown]
  - Weight decreased [Unknown]
  - Polydipsia [Unknown]

NARRATIVE: CASE EVENT DATE: 20180824
